FAERS Safety Report 4491476-2 (Version None)
Quarter: 2004Q4

REPORT INFORMATION
  Report Type: 
  Country: None (occurrence: None)
  Receive Date: 20041102
  Receipt Date: 20041022
  Transmission Date: 20050328
  Serious: Yes (Hospitalization)
  Sender: FDA-Public Use
  Company Number: STA-AE-04-MTX-471

PATIENT
  Age: 70 Year
  Sex: Male

DRUGS (8)
  1. RHEUMATREX [Suspect]
     Indication: RHEUMATOID ARTHRITIS
     Dosage: 4 MG 1X PER 1 DAY, ORAL
     Route: 048
     Dates: end: 20040826
  2. BUCILLAMINE (BUCILLAMINE) [Concomitant]
  3. LOXONIN (LOXOPROFEN SODIUM) [Concomitant]
  4. SUCRALFATE [Concomitant]
  5. NIZATIDINE [Concomitant]
  6. BAYASPIRINA (ACETYLSALICYLIC ACID) [Concomitant]
  7. ATELEC (CILNIDIPINE) [Concomitant]
  8. GASTROM (ECABET MONOSODIUM) [Concomitant]

REACTIONS (8)
  - BLOOD CREATINE PHOSPHOKINASE INCREASED [None]
  - CEREBRAL INFARCTION [None]
  - CONDITION AGGRAVATED [None]
  - GENERAL PHYSICAL HEALTH DETERIORATION [None]
  - HYPOXIA [None]
  - INTERSTITIAL LUNG DISEASE [None]
  - MYOCARDIAL INFARCTION [None]
  - VENTRICULAR SEPTAL DEFECT ACQUIRED [None]
